FAERS Safety Report 20085366 (Version 1)
Quarter: 2021Q4

REPORT INFORMATION
  Report Type: Spontaneous
  Country: US (occurrence: US)
  Receive Date: 20211118
  Receipt Date: 20211118
  Transmission Date: 20220303
  Serious: No
  Sender: FDA-Public Use
  Company Number: US-AMNEAL PHARMACEUTICALS-2021-AMRX-01081

PATIENT
  Age: 84 Year
  Sex: Female
  Weight: 78.005 kg

DRUGS (4)
  1. COLCHICINE [Suspect]
     Active Substance: COLCHICINE
     Indication: Gout
     Dosage: 1 TABLETS, 1 /DAY
     Route: 048
     Dates: start: 20210302, end: 20210314
  2. COLCHICINE [Suspect]
     Active Substance: COLCHICINE
     Dosage: 2 TABLETS, 1 /DAY
     Route: 048
     Dates: start: 20210315
  3. ISOSORBIDE MONONITRATE;METOPROLOL SUCCINATE [Concomitant]
     Indication: Product used for unknown indication
     Dosage: 1 TABLETS, 1 /DAY
     Route: 065
  4. ATORVASTATIN [Concomitant]
     Active Substance: ATORVASTATIN
     Indication: Product used for unknown indication
     Dosage: 40 MILLIGRAM, 1 /DAY
     Route: 065

REACTIONS (1)
  - Drug ineffective [Not Recovered/Not Resolved]

NARRATIVE: CASE EVENT DATE: 20210301
